FAERS Safety Report 23435817 (Version 1)
Quarter: 2024Q1

REPORT INFORMATION
  Report Type: Spontaneous
  Country: NL (occurrence: NL)
  Receive Date: 20240124
  Receipt Date: 20240124
  Transmission Date: 20240409
  Serious: Yes (Other)
  Sender: FDA-Public Use
  Company Number: None

PATIENT
  Age: 41 Year
  Sex: Female
  Weight: 75 kg

DRUGS (1)
  1. CITALOPRAM HYDROBROMIDE [Suspect]
     Active Substance: CITALOPRAM HYDROBROMIDE
     Indication: Depression
     Dosage: 1 DOSAGE FORM, ONCE PER DAY
     Dates: start: 20180104, end: 20181219

REACTIONS (4)
  - Mental impairment [Unknown]
  - Hyperhidrosis [Unknown]
  - Dry throat [Unknown]
  - Product substitution issue [Unknown]
